FAERS Safety Report 6411304-5 (Version None)
Quarter: 2009Q4

REPORT INFORMATION
  Report Type: 
  Country: None (occurrence: None)
  Receive Date: 20091023
  Receipt Date: 20091013
  Transmission Date: 20100525
  Serious: Yes (Disabling, Other)
  Sender: FDA-Public Use
  Company Number: US-PFIZER INC-2006152158

PATIENT
  Sex: Female
  Weight: 77 kg

DRUGS (1)
  1. DEPO-PROVERA [Suspect]
     Indication: CONTRACEPTION
     Dosage: UNK
     Route: 030
     Dates: start: 19940101, end: 20060301

REACTIONS (2)
  - OSTEOPOROSIS [None]
  - TOOTH DECALCIFICATION [None]
